FAERS Safety Report 6030776-1 (Version None)
Quarter: 2009Q1

REPORT INFORMATION
  Report Type: 
  Country: None (occurrence: None)
  Receive Date: 20090107
  Receipt Date: 20081230
  Transmission Date: 20090719
  Serious: Yes (Other)
  Sender: FDA-Public Use
  Company Number: PHHY2008CA33619

PATIENT

DRUGS (2)
  1. DIOVAN [Suspect]
  2. CALCIUM CHANNEL BLOCKERS [Concomitant]

REACTIONS (4)
  - CARDIAC FLUTTER [None]
  - CHEST PAIN [None]
  - DECREASED APPETITE [None]
  - HEADACHE [None]
